FAERS Safety Report 26019413 (Version 1)
Quarter: 2025Q4

REPORT INFORMATION
  Report Type: Report from Study
  Country: US (occurrence: US)
  Receive Date: 20251110
  Receipt Date: 20251110
  Transmission Date: 20260117
  Serious: Yes (Other)
  Sender: LEO PHARM
  Company Number: US-LEO Pharma-384000

PATIENT
  Age: 80 Year
  Sex: Female

DRUGS (1)
  1. ADBRY [Suspect]
     Active Substance: TRALOKINUMAB-LDRM
     Indication: Dermatitis atopic
     Dosage: PATIENT WENT 3 WEEKS WITHOUT DOSE INSTEAD OF 2 WEEKS DUE TO THE PATIENT FALLING RECENTLY.
     Dates: start: 20250731

REACTIONS (2)
  - Fall [Unknown]
  - Craniofacial fracture [Unknown]
